FAERS Safety Report 24622017 (Version 2)
Quarter: 2025Q3

REPORT INFORMATION
  Report Type: Report from Study
  Country: KR (occurrence: KR)
  Receive Date: 20241114
  Receipt Date: 20250803
  Transmission Date: 20251021
  Serious: Yes (Hospitalization)
  Sender: ALEXION PHARMACEUTICALS
  Company Number: KR-AstraZeneca-2023A099247

PATIENT
  Age: 55 Year
  Sex: Male
  Weight: 68 kg

DRUGS (24)
  1. DURVALUMAB [Suspect]
     Active Substance: DURVALUMAB
     Indication: Non-small cell lung cancer
  2. DURVALUMAB [Suspect]
     Active Substance: DURVALUMAB
     Dates: start: 20221107, end: 20230313
  3. DURVALUMAB [Suspect]
     Active Substance: DURVALUMAB
  4. DURVALUMAB [Suspect]
     Active Substance: DURVALUMAB
  5. DURVALUMAB [Suspect]
     Active Substance: DURVALUMAB
  6. DURVALUMAB [Suspect]
     Active Substance: DURVALUMAB
  7. DURVALUMAB [Suspect]
     Active Substance: DURVALUMAB
  8. DURVALUMAB [Suspect]
     Active Substance: DURVALUMAB
  9. DURVALUMAB [Suspect]
     Active Substance: DURVALUMAB
  10. DURVALUMAB [Suspect]
     Active Substance: DURVALUMAB
  11. DURVALUMAB [Suspect]
     Active Substance: DURVALUMAB
  12. DURVALUMAB [Suspect]
     Active Substance: DURVALUMAB
  13. DURVALUMAB [Suspect]
     Active Substance: DURVALUMAB
  14. DURVALUMAB [Suspect]
     Active Substance: DURVALUMAB
  15. DURVALUMAB [Suspect]
     Active Substance: DURVALUMAB
  16. DURVALUMAB [Suspect]
     Active Substance: DURVALUMAB
     Dates: start: 20230623, end: 20230710
  17. DURVALUMAB [Suspect]
     Active Substance: DURVALUMAB
     Dates: start: 20230710, end: 20230710
  18. DURVALUMAB [Suspect]
     Active Substance: DURVALUMAB
     Dates: start: 20230727, end: 20230912
  19. DURVALUMAB [Suspect]
     Active Substance: DURVALUMAB
  20. DURVALUMAB [Suspect]
     Active Substance: DURVALUMAB
  21. SODIUM CHLORIDE [Concomitant]
     Active Substance: SODIUM CHLORIDE
     Indication: Adverse event
  22. PENNEL [Concomitant]
     Indication: Liver injury
  23. BISOPROLOL FUMARATE [Concomitant]
     Active Substance: BISOPROLOL FUMARATE
     Indication: Hypertension
  24. ACETYLCYSTEINE [Concomitant]
     Active Substance: ACETYLCYSTEINE
     Indication: Pituitary tumour removal

REACTIONS (1)
  - Supraventricular tachycardia [Recovered/Resolved]

NARRATIVE: CASE EVENT DATE: 20230410
